FAERS Safety Report 18509983 (Version 10)
Quarter: 2021Q3

REPORT INFORMATION
  Report Type: Spontaneous
  Country: US (occurrence: US)
  Receive Date: 20201117
  Receipt Date: 20210820
  Transmission Date: 20211014
  Serious: Yes (Other)
  Sender: FDA-Public Use
  Company Number: US-GLAXOSMITHKLINE-US2020AMR224483

PATIENT
  Sex: Female

DRUGS (9)
  1. ZEJULA [Suspect]
     Active Substance: NIRAPARIB
     Dosage: 200 MG, QD
     Route: 048
  2. ZEJULA [Suspect]
     Active Substance: NIRAPARIB
     Dosage: 200 MG, QD
  3. HYDROCHLOROTHIAZIDE. [Concomitant]
     Active Substance: HYDROCHLOROTHIAZIDE
     Indication: PRODUCT USED FOR UNKNOWN INDICATION
     Dosage: UNK UNK, QD
  4. ZEJULA [Suspect]
     Active Substance: NIRAPARIB
     Indication: OVARIAN CANCER
     Dosage: 200 MG, QD
     Dates: start: 20201030
  5. ZEJULA [Suspect]
     Active Substance: NIRAPARIB
     Dosage: 100 MG, QD
     Route: 048
     Dates: start: 20210325
  6. ZEJULA [Suspect]
     Active Substance: NIRAPARIB
     Dosage: 100 MG, QD
     Route: 048
  7. GABAPENTIN. [Suspect]
     Active Substance: GABAPENTIN
     Indication: PRODUCT USED FOR UNKNOWN INDICATION
     Dosage: 900 MG, QD
  8. ZEJULA [Suspect]
     Active Substance: NIRAPARIB
     Dosage: 100 MG, QD
     Route: 048
  9. ZEJULA [Suspect]
     Active Substance: NIRAPARIB
     Dosage: 200 MG, QD

REACTIONS (22)
  - Pain [Unknown]
  - Dyspnoea [Not Recovered/Not Resolved]
  - Arthralgia [Unknown]
  - Pleural effusion [Unknown]
  - Haemoglobin decreased [Recovered/Resolved]
  - Thrombosis [Unknown]
  - Product dose omission in error [Unknown]
  - Dyspepsia [Unknown]
  - Fatigue [Unknown]
  - Dizziness [Unknown]
  - Fungal infection [Unknown]
  - Dysuria [Unknown]
  - Adverse drug reaction [Unknown]
  - Memory impairment [Unknown]
  - Lung disorder [Unknown]
  - Abdominal discomfort [Recovered/Resolved]
  - Ear discomfort [Unknown]
  - Insomnia [Unknown]
  - Pneumonia [Unknown]
  - Somnolence [Unknown]
  - Headache [Unknown]
  - Cough [Unknown]
